FAERS Safety Report 4909277-7 (Version None)
Quarter: 2006Q1

REPORT INFORMATION
  Report Type: 
  Country: None (occurrence: None)
  Receive Date: 20060208
  Receipt Date: 20060208
  Transmission Date: 20060701
  Serious: Yes (Other)
  Sender: FDA-Public Use
  Company Number: None

PATIENT
  Age: 35 Year
  Sex: Female
  Weight: 91.173 kg

DRUGS (10)
  1. REQUIP [Suspect]
     Indication: RESTLESS LEGS SYNDROME
     Dosage: 1 MG QHS PO
     Route: 048
     Dates: start: 20051007, end: 20051020
  2. ALBUTEROL [Concomitant]
  3. ADVAIR DISKUS 100/50 [Concomitant]
  4. ATROVENT [Concomitant]
  5. FLOVENT [Concomitant]
  6. ALLEGRA [Concomitant]
  7. NEXIUM [Concomitant]
  8. NASONEX [Concomitant]
  9. VERAPAMIL [Concomitant]
  10. RELAFEN [Concomitant]

REACTIONS (4)
  - CHOLESTASIS [None]
  - DRUG TOXICITY [None]
  - INFLAMMATION [None]
  - UNEVALUABLE EVENT [None]
